FAERS Safety Report 15245193 (Version 1)
Quarter: 2018Q3

REPORT INFORMATION
  Report Type: Spontaneous
  Country: US (occurrence: US)
  Receive Date: 20180806
  Receipt Date: 20180806
  Transmission Date: 20181010
  Serious: No
  Sender: FDA-Public Use
  Company Number: US-PFIZER INC-2018309648

PATIENT
  Age: 10 Year
  Sex: Male

DRUGS (1)
  1. GENOTROPIN [Suspect]
     Active Substance: SOMATROPIN
     Dosage: 2 MG, DAILY
     Dates: start: 201507

REACTIONS (4)
  - Blood urea increased [Unknown]
  - Lymphocyte count decreased [Unknown]
  - Blood 1,25-dihydroxycholecalciferol decreased [Unknown]
  - Neutrophil count increased [Unknown]
